FAERS Safety Report 15562310 (Version 6)
Quarter: 2019Q2

REPORT INFORMATION
  Report Type: Report from Study
  Country: SE (occurrence: SE)
  Receive Date: 20181029
  Receipt Date: 20190415
  Transmission Date: 20190711
  Serious: Yes (Hospitalization)
  Sender: FDA-Public Use
  Company Number: SE-ROCHE-2204546

PATIENT
  Age: 65 Year
  Sex: Female

DRUGS (24)
  1. CARBOPLATIN. [Suspect]
     Active Substance: CARBOPLATIN
     Indication: OVARIAN CANCER
     Dosage: CARBOPLATIN AT A DOSE TO ACHIEVE A TARGET AREA UNDER THE CURVE (AUC) OF 6 MG/ML*MIN ON DAY 1 OF EACH
     Route: 042
     Dates: start: 20181011
  2. BETAMETASON [Concomitant]
     Route: 048
     Dates: start: 20181106, end: 20181106
  3. KLEMASTIN [Concomitant]
     Route: 065
     Dates: start: 20181106, end: 20181106
  4. ATEZOLIZUMAB. [Suspect]
     Active Substance: ATEZOLIZUMAB
     Indication: OVARIAN CANCER
     Dosage: DATE OF MOST RECENT DOSE OF ATEZOLIZUMAB WAS ADMINISTERED ON 11/OCT/2018
     Route: 042
     Dates: start: 20181011
  5. PACLITAXEL. [Suspect]
     Active Substance: PACLITAXEL
     Indication: PERITONEAL NEOPLASM
  6. OMEPRAZOL [Concomitant]
     Active Substance: OMEPRAZOLE
     Indication: GASTROOESOPHAGEAL REFLUX DISEASE
     Route: 042
     Dates: start: 20181106
  7. BETAMETASON [Concomitant]
     Route: 048
     Dates: start: 20181108, end: 20181109
  8. BETAMETASON [Concomitant]
     Route: 048
     Dates: start: 20181107, end: 20181107
  9. CARBOPLATIN. [Suspect]
     Active Substance: CARBOPLATIN
     Indication: PERITONEAL NEOPLASM
  10. PACLITAXEL. [Suspect]
     Active Substance: PACLITAXEL
     Indication: FALLOPIAN TUBE CANCER
  11. BETAMETASON [Concomitant]
     Indication: PREMEDICATION
     Route: 048
     Dates: start: 20181011, end: 20181011
  12. APREPITANT. [Concomitant]
     Active Substance: APREPITANT
     Indication: PREMEDICATION
     Route: 065
     Dates: start: 20181011, end: 20181013
  13. BETAMETASON [Concomitant]
     Route: 048
     Dates: start: 20181013, end: 20181014
  14. BETAMETASON [Concomitant]
     Route: 048
     Dates: start: 20181012, end: 20181012
  15. RANITIDIN [Concomitant]
     Active Substance: RANITIDINE HYDROCHLORIDE
     Route: 065
     Dates: start: 20181106, end: 20181106
  16. PACLITAXEL. [Suspect]
     Active Substance: PACLITAXEL
     Indication: OVARIAN CANCER
     Dosage: DATE OF MOST RECENT DOSE OF PACLITAXEL PRIOR TO SAE: 11/OCT/2018 DOSE 323.75 MG
     Route: 042
     Dates: start: 20181011
  17. OMEPRAZOL [Concomitant]
     Active Substance: OMEPRAZOLE
     Route: 065
     Dates: start: 20180813
  18. ONDANSETRON [Concomitant]
     Active Substance: ONDANSETRON
     Route: 065
     Dates: start: 20181106, end: 20181107
  19. RANITIDIN [Concomitant]
     Active Substance: RANITIDINE HYDROCHLORIDE
     Indication: PREMEDICATION
     Route: 065
     Dates: start: 20181011, end: 20181011
  20. CARBOPLATIN. [Suspect]
     Active Substance: CARBOPLATIN
     Indication: FALLOPIAN TUBE CANCER
  21. CANDESARTAN. [Concomitant]
     Active Substance: CANDESARTAN
     Indication: HYPERTENSION
     Route: 065
     Dates: start: 20180523
  22. APREPITANT. [Concomitant]
     Active Substance: APREPITANT
     Route: 065
     Dates: start: 20181106, end: 20181108
  23. ONDANSETRON [Concomitant]
     Active Substance: ONDANSETRON
     Indication: PREMEDICATION
     Route: 065
     Dates: start: 20181011, end: 20181012
  24. KLEMASTIN [Concomitant]
     Indication: PREMEDICATION
     Route: 065
     Dates: start: 20181011, end: 20181011

REACTIONS (1)
  - Cytokine release syndrome [Recovered/Resolved]

NARRATIVE: CASE EVENT DATE: 20181020
